FAERS Safety Report 11454840 (Version 8)
Quarter: 2016Q2

REPORT INFORMATION
  Report Type: Report from Study
  Country: CO (occurrence: CO)
  Receive Date: 20150903
  Receipt Date: 20160608
  Transmission Date: 20160815
  Serious: Yes (Other)
  Sender: FDA-Public Use
  Company Number: PHHY2015CO099346

PATIENT
  Age: 71 Year
  Sex: Male
  Weight: 111 kg

DRUGS (8)
  1. CARBIDOL [Concomitant]
     Indication: PRODUCT USED FOR UNKNOWN INDICATION
     Dosage: UNK
     Route: 065
     Dates: start: 2010
  2. LOSARTAN. [Concomitant]
     Active Substance: LOSARTAN
     Indication: PRODUCT USED FOR UNKNOWN INDICATION
     Dosage: 1 OT, QD
     Route: 065
  3. ISOSORBIDE DINITRATE. [Concomitant]
     Active Substance: ISOSORBIDE DINITRATE
     Indication: PRODUCT USED FOR UNKNOWN INDICATION
     Route: 065
  4. ATORVASTATIN [Concomitant]
     Active Substance: ATORVASTATIN
     Indication: PRODUCT USED FOR UNKNOWN INDICATION
     Dosage: UNK
     Route: 065
  5. CARVEDILOL. [Concomitant]
     Active Substance: CARVEDILOL
     Indication: PRODUCT USED FOR UNKNOWN INDICATION
     Route: 065
  6. TASIGNA [Suspect]
     Active Substance: NILOTINIB
     Indication: CHRONIC MYELOID LEUKAEMIA
     Dosage: 200 MG, BID (1 IN THE MORNING AND 1 AT NIGHT)
     Route: 048
     Dates: start: 20110108
  7. LOVASTATIN. [Concomitant]
     Active Substance: LOVASTATIN
     Indication: PRODUCT USED FOR UNKNOWN INDICATION
     Dosage: UNK
     Route: 065
     Dates: start: 2009
  8. ASPIRIN. [Concomitant]
     Active Substance: ASPIRIN
     Indication: PRODUCT USED FOR UNKNOWN INDICATION
     Route: 065

REACTIONS (19)
  - Tooth loss [Unknown]
  - Muscle rigidity [Recovering/Resolving]
  - Musculoskeletal stiffness [Recovered/Resolved]
  - Pain in jaw [Recovering/Resolving]
  - Hypertension [Unknown]
  - Muscle spasms [Recovered/Resolved]
  - Apnoea [Unknown]
  - Dyspnoea [Unknown]
  - Hypoaesthesia [Recovered/Resolved]
  - Depressed mood [Unknown]
  - Dizziness [Recovering/Resolving]
  - Joint stiffness [Not Recovered/Not Resolved]
  - Trismus [Recovered/Resolved]
  - Dizziness [Recovered/Resolved]
  - Pulmonary congestion [Unknown]
  - Pain in jaw [Recovered/Resolved]
  - Arthralgia [Recovered/Resolved]
  - Diabetes mellitus [Unknown]
  - Fatigue [Unknown]

NARRATIVE: CASE EVENT DATE: 20110108
